FAERS Safety Report 25818927 (Version 1)
Quarter: 2025Q3

REPORT INFORMATION
  Report Type: Spontaneous
  Country: EU (occurrence: EU)
  Receive Date: 20250918
  Receipt Date: 20250918
  Transmission Date: 20251020
  Serious: Yes (Other)
  Sender: MYLAN
  Company Number: EU-JNJFOC-20250901071

PATIENT
  Sex: Male

DRUGS (4)
  1. ABIRATERONE [Suspect]
     Active Substance: ABIRATERONE
     Indication: Prostate cancer
  2. ABIRATERONE [Suspect]
     Active Substance: ABIRATERONE
     Route: 048
  3. ABIRATERONE [Suspect]
     Active Substance: ABIRATERONE
     Route: 048
  4. ABIRATERONE [Suspect]
     Active Substance: ABIRATERONE

REACTIONS (1)
  - Prostate cancer [Unknown]
